FAERS Safety Report 7022888-0 (Version None)
Quarter: 2010Q3

REPORT INFORMATION
  Report Type: 
  Country: None (occurrence: None)
  Receive Date: 20100930
  Receipt Date: 20100923
  Transmission Date: 20110219
  Serious: Yes (Life-Threatening)
  Sender: FDA-Public Use
  Company Number: RU-ABBOTT-10P-251-0640189-00

PATIENT
  Age: 19 Year
  Sex: Female

DRUGS (3)
  1. DEPAKENE [Suspect]
     Indication: PARTIAL SEIZURES
     Dosage: EXTENDED RELEASE
     Route: 048
     Dates: start: 20050101
  2. DEPAKENE [Suspect]
     Route: 048
     Dates: start: 20091210, end: 20091221
  3. LAMOTRIGINE [Concomitant]
     Indication: PRODUCT USED FOR UNKNOWN INDICATION

REACTIONS (3)
  - CONVULSION [None]
  - DRUG INEFFECTIVE [None]
  - PRODUCT COUNTERFEIT [None]
